FAERS Safety Report 9988774 (Version 1)
Quarter: 2013Q4

REPORT INFORMATION
  Report Type: Spontaneous
  Country: US (occurrence: None)
  Receive Date: 20131017
  Receipt Date: 20131017
  Transmission Date: 20140711
  Serious: Yes (Other)
  Sender: FDA-Public Use
  Company Number: AUR-APL-2013-08090

PATIENT
  Age: 71 Year
  Sex: Female

DRUGS (2)
  1. ALENDRONIC ACID (ALENDRONIC ACID) [Suspect]
     Indication: OSTEOPOROSIS
     Route: 048
     Dates: start: 201309
  2. FOSAMAX (ALENDRONATE SODIUM) [Suspect]
     Indication: OSTEOPOROSIS
     Route: 048
     Dates: start: 2008

REACTIONS (3)
  - Hip fracture [None]
  - Nasopharyngitis [None]
  - Influenza [None]
